FAERS Safety Report 14258630 (Version 1)
Quarter: 2017Q4

REPORT INFORMATION
  Report Type: Spontaneous
  Country: GB (occurrence: GB)
  Receive Date: 20171206
  Receipt Date: 20171206
  Transmission Date: 20180321
  Serious: No
  Sender: FDA-Public Use
  Company Number: None

PATIENT
  Age: 8 Year
  Sex: Male

DRUGS (16)
  1. STEROID CREAM [Suspect]
     Active Substance: UNSPECIFIED INGREDIENT
  2. PHENERGAN [Concomitant]
     Active Substance: PROMETHAZINE HYDROCHLORIDE
  3. EUMOVATE [Concomitant]
     Active Substance: CLOBETASONE BUTYRATE
  4. MELATONIN [Concomitant]
     Active Substance: MELATONIN
  5. SERETIDE [Concomitant]
     Active Substance: FLUTICASONE PROPIONATE\SALMETEROL XINAFOATE
  6. AZITHROMYCIN ANHYDROUS. [Concomitant]
     Active Substance: AZITHROMYCIN ANHYDROUS
  7. CETRABAN [Concomitant]
  8. AZATHIOPRINE. [Concomitant]
     Active Substance: AZATHIOPRINE
  9. EPIPEN [Concomitant]
     Active Substance: EPINEPHRINE
  10. THEOPHYLLINE [Concomitant]
     Active Substance: THEOPHYLLINE ANHYDROUS
  11. HYDROMOL [Concomitant]
  12. PIRITON [Concomitant]
     Active Substance: CHLORPHENIRAMINE MALEATE
  13. CETIRIZINE [Concomitant]
     Active Substance: CETIRIZINE HYDROCHLORIDE
  14. SALBUTAMOL [Concomitant]
     Active Substance: ALBUTEROL
  15. MOMETASONE [Concomitant]
     Active Substance: MOMETASONE
  16. ACYCLOVIR. [Concomitant]
     Active Substance: ACYCLOVIR

REACTIONS (9)
  - Skin burning sensation [None]
  - Myalgia [None]
  - Erythema [None]
  - Pruritus [None]
  - Headache [None]
  - Skin disorder [None]
  - Body temperature abnormal [None]
  - Haemorrhage [None]
  - Pain [None]

NARRATIVE: CASE EVENT DATE: 20130530
